FAERS Safety Report 18309935 (Version 2)
Quarter: 2020Q3

REPORT INFORMATION
  Report Type: Spontaneous
  Country: SG (occurrence: SG)
  Receive Date: 20200924
  Receipt Date: 20200930
  Transmission Date: 20201103
  Serious: Yes (Hospitalization, Other)
  Sender: FDA-Public Use
  Company Number: SG-GILEAD-2020-0496286

PATIENT
  Age: 38 Year
  Sex: Male

DRUGS (5)
  1. AZITHROMYCIN [AZITHROMYCIN MONOHYDRATE] [Concomitant]
     Indication: CEREBRAL TOXOPLASMOSIS
     Dosage: 750 MG, QD
     Dates: end: 20200911
  2. PYRIMETHAMINE [Concomitant]
     Active Substance: PYRIMETHAMINE
     Indication: CEREBRAL TOXOPLASMOSIS
     Dosage: 200 MG ON DAY 1 THEN 75 MG DAILY
     Dates: end: 20200911
  3. BIKTARVY [Suspect]
     Active Substance: BICTEGRAVIR SODIUM\EMTRICITABINE\TENOFOVIR ALAFENAMIDE FUMARATE
     Indication: HIV INFECTION
     Dosage: 1 DOSAGE FORM, UNK
     Route: 048
     Dates: start: 20200911, end: 20200922
  4. BACTRIM [Concomitant]
     Active Substance: SULFAMETHOXAZOLE\TRIMETHOPRIM
     Indication: CEREBRAL TOXOPLASMOSIS
     Dosage: UNK
     Dates: start: 20200727
  5. FOLINIC ACID [CALCIUM FOLINATE] [Concomitant]
     Active Substance: LEUCOVORIN CALCIUM
     Indication: CEREBRAL TOXOPLASMOSIS
     Dosage: 15 MG, QD
     Dates: end: 20200911

REACTIONS (1)
  - Stevens-Johnson syndrome [Not Recovered/Not Resolved]

NARRATIVE: CASE EVENT DATE: 20200918
